FAERS Safety Report 7386307-7 (Version None)
Quarter: 2011Q1

REPORT INFORMATION
  Report Type: 
  Country: None (occurrence: None)
  Receive Date: 20110331
  Receipt Date: 20110317
  Transmission Date: 20110831
  Serious: Yes (Hospitalization, Other)
  Sender: FDA-Public Use
  Company Number: PHHY2011DE23336

PATIENT
  Sex: Female

DRUGS (12)
  1. INSIDON [Suspect]
     Dosage: 15 DROPS TWICE DAILY
     Dates: start: 20110218
  2. DIOVAN [Suspect]
     Dosage: 80 MG
     Dates: start: 20100301
  3. CO-DIOVAN [Suspect]
     Dosage: 80 MG, UNK
     Dates: start: 20101223
  4. PREDNISOLONE [Concomitant]
     Dates: start: 20101128
  5. METOPROLOL SUCCINATE [Concomitant]
     Dosage: 47.5 MG, UNK
     Dates: start: 20101129
  6. TRANXILIUM [Concomitant]
     Dosage: 20 MG, UNK
     Dates: start: 20110104
  7. CYCLOCAPS BUDESONID [Concomitant]
     Dosage: 400 UG, UNK
     Dates: start: 20101221
  8. TAVOR [Concomitant]
  9. BAYOTENSIN [Concomitant]
     Dates: start: 20101129
  10. BRONCHIKUM [Concomitant]
     Dosage: UNK
     Dates: start: 20101221
  11. DIOVAN [Suspect]
     Dosage: 0.5 DF, DAILY
  12. TAVANIC [Concomitant]
     Dates: start: 20101126

REACTIONS (11)
  - HYPERTENSIVE CRISIS [None]
  - HYPERSENSITIVITY [None]
  - OVARIAN CYST [None]
  - HYPERTENSION [None]
  - HYPERTROPHY [None]
  - PANIC DISORDER [None]
  - ANXIETY [None]
  - ERYTHEMA [None]
  - OSTEOMA [None]
  - DEPRESSION [None]
  - BRONCHITIS [None]
